FAERS Safety Report 14474668 (Version 1)
Quarter: 2018Q1

REPORT INFORMATION
  Report Type: Spontaneous
  Country: US (occurrence: US)
  Receive Date: 20180201
  Receipt Date: 20180201
  Transmission Date: 20180509
  Serious: Yes (Other)
  Sender: FDA-Public Use
  Company Number: US-SEPTODONT-201804467

PATIENT
  Sex: Female
  Weight: 63.5 kg

DRUGS (1)
  1. SEPTOCAINE [Suspect]
     Active Substance: ARTICAINE HYDROCHLORIDE\EPINEPHRINE BITARTRATE
     Indication: LOCAL ANAESTHESIA
     Route: 004
     Dates: start: 20170515, end: 20170515

REACTIONS (5)
  - Injection site erythema [Recovered/Resolved]
  - Injection site discolouration [Unknown]
  - Procedural pain [Recovered/Resolved]
  - Gingival disorder [Unknown]
  - Injection site necrosis [Recovered/Resolved]

NARRATIVE: CASE EVENT DATE: 2017
